FAERS Safety Report 6751869-7 (Version None)
Quarter: 2010Q2

REPORT INFORMATION
  Report Type: 
  Country: None (occurrence: None)
  Receive Date: 20100526
  Receipt Date: 20100402
  Transmission Date: 20101027
  Serious: No
  Sender: FDA-Public Use
  Company Number: 306670

PATIENT
  Age: 61 Year
  Sex: Female
  Weight: 218 kg

DRUGS (10)
  1. VICTOZA [Suspect]
     Indication: TYPE 2 DIABETES MELLITUS
     Dosage: 0.6 MG, QD, SUBCUTANEOUS; 1.2 MG, QD, SUBCUTANEOUS
     Route: 058
     Dates: start: 20100301
  2. FORTAMET (MEFORMIN HYDROCHLORIDE) [Concomitant]
  3. LOVASTATIN [Concomitant]
  4. ERGOCALCIFEROL [Concomitant]
  5. ASPIRIN [Concomitant]
  6. MULTIVITAMIN AND MINERAL SUPPLEMENT (MINERALS NOS, VITAMINS NOS) [Concomitant]
  7. FISH OIL (FISH OIL) [Concomitant]
  8. SYNTHROID [Concomitant]
  9. BENICAR HCT [Concomitant]
  10. PAXIL [Concomitant]

REACTIONS (6)
  - DIZZINESS [None]
  - FEELING JITTERY [None]
  - HEART RATE INCREASED [None]
  - HYPERHIDROSIS [None]
  - NAUSEA [None]
  - NERVOUSNESS [None]
